FAERS Safety Report 8905786 (Version 3)
Quarter: 2014Q4

REPORT INFORMATION
  Report Type: Report from Study
  Country: JP (occurrence: JP)
  Receive Date: 20121113
  Receipt Date: 20141020
  Transmission Date: 20150529
  Serious: Yes (Hospitalization, Other)
  Sender: FDA-Public Use
  Company Number: JP-GLAXOSMITHKLINE-B0818515A

PATIENT
  Age: 60 Year
  Sex: Female
  Weight: 67 kg

DRUGS (9)
  1. PASTARON [Concomitant]
     Indication: PALMAR-PLANTAR ERYTHRODYSAESTHESIA SYNDROME
     Dosage: UNK
     Route: 061
  2. ZOMETA [Concomitant]
     Active Substance: ZOLEDRONIC ACID
     Dosage: UNK
  3. XELODA [Concomitant]
     Active Substance: CAPECITABINE
     Indication: BREAST CANCER RECURRENT
     Dosage: 3000 MG, UNK
     Route: 048
     Dates: start: 20091215, end: 20100109
  4. DEPAS [Concomitant]
     Active Substance: ETIZOLAM
     Indication: INSOMNIA
     Dosage: UNK
  5. XELODA [Concomitant]
     Active Substance: CAPECITABINE
     Dosage: 2400 MG, UNK
     Dates: start: 20100301, end: 20100621
  6. PYDOXAL [Concomitant]
     Active Substance: PYRIDOXAL
     Indication: PALMAR-PLANTAR ERYTHRODYSAESTHESIA SYNDROME
     Dosage: UNK
  7. TYKERB [Suspect]
     Active Substance: LAPATINIB DITOSYLATE
     Indication: BREAST CANCER RECURRENT
     Dosage: 1250 MG, QD
     Dates: start: 20091215, end: 20120501
  8. XELODA [Concomitant]
     Active Substance: CAPECITABINE
     Dosage: 1800 MG, UNK
     Dates: start: 20100622, end: 20100726
  9. XELODA [Concomitant]
     Active Substance: CAPECITABINE
     Dosage: 1200 MG, UNK
     Dates: start: 20100727

REACTIONS (4)
  - White blood cell count decreased [Unknown]
  - Creatinine renal clearance increased [Not Recovered/Not Resolved]
  - Red blood cell count decreased [Unknown]
  - Thrombocytopenia [Not Recovered/Not Resolved]

NARRATIVE: CASE EVENT DATE: 20100119
